FAERS Safety Report 5245348-6 (Version None)
Quarter: 2007Q1

REPORT INFORMATION
  Report Type: 
  Country: None (occurrence: None)
  Receive Date: 20070223
  Receipt Date: 20070209
  Transmission Date: 20070707
  Serious: Yes (Death, Hospitalization, Other)
  Sender: FDA-Public Use
  Company Number: US-AMGEN-STX206534

PATIENT
  Sex: Male
  Weight: 108.5 kg

DRUGS (10)
  1. ENBREL [Suspect]
     Indication: RHEUMATOID ARTHRITIS
     Route: 058
     Dates: start: 20021209, end: 20061213
  2. METHOTREXATE [Concomitant]
     Dates: start: 20020912
  3. PREDNISONE [Concomitant]
  4. LOPRESSOR [Concomitant]
  5. LIPITOR [Concomitant]
  6. ASPIRIN [Concomitant]
  7. FOLIC ACID [Concomitant]
  8. AVAPRO [Concomitant]
  9. NIASPAN [Concomitant]
  10. LASIX [Concomitant]

REACTIONS (4)
  - LUNG NEOPLASM MALIGNANT [None]
  - LYMPHOMA [None]
  - METASTASIS [None]
  - PULMONARY EMBOLISM [None]
